FAERS Safety Report 4306815-2 (Version None)
Quarter: 2004Q1

REPORT INFORMATION
  Report Type: 
  Country: None (occurrence: None)
  Receive Date: 20040225
  Receipt Date: 20040211
  Transmission Date: 20041129
  Serious: Yes (Hospitalization, Other)
  Sender: FDA-Public Use
  Company Number: USA-2003-0010574

PATIENT
  Age: 48 Year
  Sex: Male
  Weight: 79.4 kg

DRUGS (22)
  1. OXYCONTIN [Suspect]
     Indication: PAIN
     Dosage: SEE IMAGE
     Route: 048
     Dates: start: 19970627
  2. AMBIEN [Concomitant]
  3. OXYCODONE HCL [Concomitant]
  4. PAXIL [Concomitant]
  5. VIOXX [Concomitant]
  6. XANAX [Concomitant]
  7. DEPAKOTE [Concomitant]
  8. LEXAPRO [Concomitant]
  9. KLONOPIN [Concomitant]
  10. PREVACID [Concomitant]
  11. PROPULSID [Concomitant]
  12. ENULOSE [Concomitant]
  13. ELAVIL [Concomitant]
  14. SERZONE [Concomitant]
  15. TYLENOL (CAPLET) [Concomitant]
  16. DULCOLAX [Concomitant]
  17. CELEBREX [Concomitant]
  18. INTERFERON (INTERFERON) [Concomitant]
  19. QUININE (QUININE) [Concomitant]
  20. DESERIL (METHYSERGIDE) [Concomitant]
  21. DOXEPIN HCL [Concomitant]
  22. COLACE [Concomitant]

REACTIONS (29)
  - ABNORMAL BEHAVIOUR [None]
  - AGITATION [None]
  - AKATHISIA [None]
  - ANXIETY [None]
  - CONSTIPATION [None]
  - DENTAL CARIES [None]
  - DIARRHOEA [None]
  - DRUG ABUSER [None]
  - DRUG DEPENDENCE [None]
  - DYSPHONIA [None]
  - DYSPNOEA [None]
  - DYSURIA [None]
  - EMOTIONAL DISTRESS [None]
  - FALL [None]
  - GASTROOESOPHAGEAL REFLUX DISEASE [None]
  - HAEMATOCHEZIA [None]
  - HALLUCINATION, VISUAL [None]
  - HYPERHIDROSIS [None]
  - LOSS OF CONSCIOUSNESS [None]
  - LYMPHADENITIS [None]
  - MUSCLE CRAMP [None]
  - NERVOUSNESS [None]
  - OVERDOSE [None]
  - PAIN [None]
  - PALPITATIONS [None]
  - PRESSURE OF SPEECH [None]
  - ROAD TRAFFIC ACCIDENT [None]
  - TREMOR [None]
  - VOMITING [None]
